FAERS Safety Report 9322348 (Version 1)
Quarter: 2013Q2

REPORT INFORMATION
  Report Type: Spontaneous
  Country: US (occurrence: US)
  Receive Date: 20130531
  Receipt Date: 20130531
  Transmission Date: 20140414
  Serious: No
  Sender: FDA-Public Use
  Company Number: US-009507513-1305USA014670

PATIENT
  Age: 5 Year
  Sex: Male

DRUGS (1)
  1. CLARITIN CHEWABLE TABLETS [Suspect]
     Indication: PRODUCT USED FOR UNKNOWN INDICATION
     Dosage: 5 MG, BID
     Route: 048
     Dates: start: 201305

REACTIONS (1)
  - Overdose [Not Recovered/Not Resolved]
